FAERS Safety Report 10775796 (Version 2)
Quarter: 2015Q3

REPORT INFORMATION
  Report Type: Spontaneous
  Country: JP (occurrence: JP)
  Receive Date: 20150209
  Receipt Date: 20150903
  Transmission Date: 20151125
  Serious: Yes (Death)
  Sender: FDA-Public Use
  Company Number: JP-JNJFOC-20150119943

PATIENT
  Age: 54 Year
  Sex: Female
  Weight: 67 kg

DRUGS (11)
  1. STELARA [Suspect]
     Active Substance: USTEKINUMAB
     Indication: PSORIATIC ARTHROPATHY
     Route: 058
     Dates: start: 20110930, end: 20110930
  2. ZINC OXIDE. [Concomitant]
     Active Substance: ZINC OXIDE
     Indication: PSORIATIC ARTHROPATHY
     Route: 061
     Dates: start: 20110930, end: 20111030
  3. HEPARINOID [Concomitant]
     Active Substance: CHONDROITIN SULFATE (BOVINE)
     Indication: PSORIATIC ARTHROPATHY
     Dosage: SEVERAL TIMES IN A DAY
     Route: 061
     Dates: start: 20111028, end: 20111221
  4. ALLELOCK [Concomitant]
     Active Substance: OLOPATADINE HYDROCHLORIDE
     Indication: PSORIATIC ARTHROPATHY
     Route: 048
     Dates: start: 20110530
  5. STELARA [Suspect]
     Active Substance: USTEKINUMAB
     Indication: PSORIATIC ARTHROPATHY
     Route: 058
     Dates: start: 20110902, end: 20110902
  6. NESP [Concomitant]
     Active Substance: DARBEPOETIN ALFA
     Route: 065
  7. RINDERON V [Concomitant]
     Active Substance: BETAMETHASONE VALERATE
     Indication: PSORIATIC ARTHROPATHY
     Route: 061
     Dates: start: 20110805, end: 20110930
  8. STELARA [Suspect]
     Active Substance: USTEKINUMAB
     Indication: PSORIATIC ARTHROPATHY
     Dosage: CYCLE 3 TO 12
     Route: 058
     Dates: start: 20111221, end: 201412
  9. OXAROL [Concomitant]
     Active Substance: MAXACALCITOL
     Indication: PSORIATIC ARTHROPATHY
     Route: 061
     Dates: start: 20110930, end: 20111030
  10. MIDPELIQ L135 [Concomitant]
     Indication: PERITONEAL DIALYSIS
     Route: 065
  11. PASTARON [Concomitant]
     Active Substance: UREA
     Indication: PSORIATIC ARTHROPATHY
     Route: 061
     Dates: end: 20120209

REACTIONS (1)
  - Myocardial infarction [Fatal]

NARRATIVE: CASE EVENT DATE: 201501
